FAERS Safety Report 24315604 (Version 1)
Quarter: 2024Q3

REPORT INFORMATION
  Report Type: Spontaneous
  Country: US (occurrence: None)
  Receive Date: 20240912
  Receipt Date: 20240912
  Transmission Date: 20241016
  Serious: Yes (Life-Threatening, Hospitalization, Disabling, Other)
  Sender: Public
  Company Number: None

PATIENT
  Age: 46 Year
  Sex: Female
  Weight: 61.65 kg

DRUGS (4)
  1. COSENTYX [Suspect]
     Active Substance: SECUKINUMAB
     Indication: Hidradenitis
     Dosage: OTHER QUANTITY : 1 INJECTION(S);?OTHER FREQUENCY : ONCE PER MONTH;?OTHER ROUTE : INJECTION INTO UPPE
     Route: 050
     Dates: start: 20240601, end: 20240810
  2. BUPROPION [Concomitant]
     Active Substance: BUPROPION
  3. FLUOXETINE [Concomitant]
     Active Substance: FLUOXETINE HYDROCHLORIDE
  4. BUSPIRONE [Concomitant]
     Active Substance: BUSPIRONE HYDROCHLORIDE

REACTIONS (7)
  - Hypokalaemia [None]
  - Colitis [None]
  - Vomiting [None]
  - Diarrhoea [None]
  - Abdominal pain [None]
  - Joint swelling [None]
  - Joint swelling [None]

NARRATIVE: CASE EVENT DATE: 20240802
